FAERS Safety Report 21879128 (Version 1)
Quarter: 2023Q1

REPORT INFORMATION
  Report Type: Spontaneous
  Country: US (occurrence: None)
  Receive Date: 20230117
  Receipt Date: 20230117
  Transmission Date: 20230418
  Serious: No
  Sender: FDA-Public Use
  Company Number: None

PATIENT
  Age: 31 Year
  Sex: Male
  Weight: 69.75 kg

DRUGS (1)
  1. DUPIXENT [Suspect]
     Active Substance: DUPILUMAB
     Indication: Eczema
     Dates: start: 20221001, end: 20230110

REACTIONS (3)
  - Condition aggravated [None]
  - Perioral dermatitis [None]
  - Treatment failure [None]

NARRATIVE: CASE EVENT DATE: 20230104
